FAERS Safety Report 18228644 (Version 1)
Quarter: 2020Q3

REPORT INFORMATION
  Report Type: Spontaneous
  Country: US (occurrence: US)
  Receive Date: 20200903
  Receipt Date: 20200903
  Transmission Date: 20201103
  Serious: No
  Sender: FDA-Public Use
  Company Number: US-BECTON DICKINSON-2020BDN00106

PATIENT
  Age: 70 Year
  Sex: Female
  Weight: 68.03 kg

DRUGS (1)
  1. CHLORAPREP WITH TINT [Suspect]
     Active Substance: CHLORHEXIDINE GLUCONATE\ISOPROPYL ALCOHOL
     Indication: INFECTION PROPHYLAXIS
     Dosage: UNK
     Route: 061
     Dates: start: 20200306, end: 20200306

REACTIONS (5)
  - Application site irritation [Recovered/Resolved]
  - Wound haemorrhage [Recovered/Resolved]
  - Application site rash [Recovered/Resolved]
  - Wound [Recovered/Resolved]
  - Application site erythema [Recovered/Resolved]

NARRATIVE: CASE EVENT DATE: 202003
